FAERS Safety Report 4311465-8 (Version None)
Quarter: 2004Q1

REPORT INFORMATION
  Report Type: 
  Country: None (occurrence: None)
  Receive Date: 20040303
  Receipt Date: 20040303
  Transmission Date: 20041129
  Serious: No
  Sender: FDA-Public Use
  Company Number: None

PATIENT
  Age: 55 Year
  Sex: Male
  Weight: 81.1939 kg

DRUGS (4)
  1. LOVASTATIN [Suspect]
     Indication: HYPERLIPIDAEMIA
     Dosage: ONE PO QPM
     Route: 048
     Dates: start: 20031205, end: 20040129
  2. HYOSCYAMINE [Concomitant]
  3. LORAZEPAM [Concomitant]
  4. ASACOL [Concomitant]

REACTIONS (1)
  - COLITIS ULCERATIVE [None]
